FAERS Safety Report 15688560 (Version 2)
Quarter: 2019Q1

REPORT INFORMATION
  Report Type: Report from Study
  Country: None (occurrence: US)
  Receive Date: 20181205
  Receipt Date: 20190123
  Transmission Date: 20190417
  Serious: Yes (Hospitalization)
  Sender: FDA-Public Use
  Company Number: US-ABBVIE-18K-163-2574568-00

PATIENT
  Age: 67 Year
  Sex: Male

DRUGS (4)
  1. VENCLEXTA [Suspect]
     Active Substance: VENETOCLAX
     Indication: CHRONIC LYMPHOCYTIC LEUKAEMIA
     Route: 048
     Dates: start: 20181107, end: 201811
  2. IMMUNOGLOBULIN G HUMAN [Concomitant]
     Active Substance: HUMAN IMMUNOGLOBULIN G
     Indication: PRODUCT USED FOR UNKNOWN INDICATION
  3. VENCLEXTA [Suspect]
     Active Substance: VENETOCLAX
     Route: 048
     Dates: start: 20181114, end: 201811
  4. VENCLEXTA [Suspect]
     Active Substance: VENETOCLAX
     Route: 048
     Dates: start: 20181121

REACTIONS (10)
  - Asthenia [Not Recovered/Not Resolved]
  - Scoliosis [Recovering/Resolving]
  - Lung disorder [Recovering/Resolving]
  - Urinary retention [Recovering/Resolving]
  - Sensitivity to weather change [Recovering/Resolving]
  - Skin infection [Recovered/Resolved]
  - Hypersomnia [Not Recovered/Not Resolved]
  - Lung infection [Recovered/Resolved]
  - Scrotal infection [Recovering/Resolving]
  - Fluid retention [Not Recovered/Not Resolved]

NARRATIVE: CASE EVENT DATE: 201811
